FAERS Safety Report 5213228-8 (Version None)
Quarter: 2007Q1

REPORT INFORMATION
  Report Type: 
  Country: None (occurrence: None)
  Receive Date: 20070118
  Receipt Date: 20070118
  Transmission Date: 20070707
  Serious: Yes (Hospitalization, Other)
  Sender: FDA-Public Use
  Company Number: None

PATIENT
  Age: 57 Year
  Sex: Male
  Weight: 110 kg

DRUGS (2)
  1. INTERFERON ALFA 2B 3 MU/0.2ML [Suspect]
     Indication: HEPATITIS C
     Dosage: ONE INJECTION  -3MILLION UNITS-  3 TIMES PER WEEK SQ
     Route: 058
     Dates: start: 20061214, end: 20061229
  2. INTERFERON ALFA 2B 3 MU/0.2ML [Suspect]
     Indication: LIVER TRANSPLANT
     Dosage: ONE INJECTION  -3MILLION UNITS-  3 TIMES PER WEEK SQ
     Route: 058
     Dates: start: 20061214, end: 20061229

REACTIONS (13)
  - CHILLS [None]
  - DECREASED APPETITE [None]
  - DEHYDRATION [None]
  - DIALYSIS [None]
  - DIARRHOEA [None]
  - DYSPEPSIA [None]
  - HEADACHE [None]
  - HEPATIC ENZYME INCREASED [None]
  - HYPOTENSION [None]
  - PAIN [None]
  - RENAL FAILURE ACUTE [None]
  - VERTIGO [None]
  - VOMITING [None]
